FAERS Safety Report 6733828-3 (Version None)
Quarter: 2010Q2

REPORT INFORMATION
  Report Type: 
  Country: None (occurrence: None)
  Receive Date: 20100520
  Receipt Date: 20100511
  Transmission Date: 20101027
  Serious: Yes (Other)
  Sender: FDA-Public Use
  Company Number: IT-JNJFOC-20100506877

PATIENT
  Age: 70 Year
  Sex: Female

DRUGS (1)
  1. CAELYX [Suspect]
     Indication: OVARIAN CANCER METASTATIC
     Route: 042

REACTIONS (4)
  - FLUSHING [None]
  - HYPERTENSIVE CRISIS [None]
  - INFUSION RELATED REACTION [None]
  - SENSE OF OPPRESSION [None]
